FAERS Safety Report 7166167-X (Version None)
Quarter: 2010Q4

REPORT INFORMATION
  Report Type: 
  Country: None (occurrence: None)
  Receive Date: 20101216
  Receipt Date: 20101202
  Transmission Date: 20110411
  Serious: Yes (Other)
  Sender: FDA-Public Use
  Company Number: US-ELI_LILLY_AND_COMPANY-US201012000655

PATIENT
  Sex: Female

DRUGS (9)
  1. FORTEO [Suspect]
     Indication: OSTEOPOROSIS
     Dosage: 20 UG, DAILY (1/D)
  2. COUMADIN [Concomitant]
  3. LOVENOX [Concomitant]
  4. CELEBREX [Concomitant]
  5. METHOTREXATE [Concomitant]
  6. SIMVASTATIN [Concomitant]
  7. FOLIC ACID [Concomitant]
  8. MULTI-VITAMIN [Concomitant]
  9. PREDNISONE [Concomitant]

REACTIONS (4)
  - DRY SKIN [None]
  - IMPAIRED HEALING [None]
  - OPEN WOUND [None]
  - THROMBOSIS [None]
